FAERS Safety Report 9066795 (Version 1)
Quarter: 2013Q1

REPORT INFORMATION
  Report Type: Spontaneous
  Country: FR (occurrence: FR)
  Receive Date: 20130214
  Receipt Date: 20130214
  Transmission Date: 20140127
  Serious: Yes (Life-Threatening)
  Sender: FDA-Public Use
  Company Number: FR-GLAXOSMITHKLINE-B0855361A

PATIENT
  Age: 90 None
  Sex: Female

DRUGS (5)
  1. LAMICTAL [Suspect]
     Indication: EPILEPSY
     Dosage: 25MG TWICE PER DAY
     Route: 048
     Dates: start: 20121027, end: 20121222
  2. APROVEL [Concomitant]
     Dosage: 75MG IN THE MORNING
     Route: 048
     Dates: start: 20121027
  3. AMLOR [Concomitant]
     Dosage: 1UNIT IN THE MORNING
     Route: 048
     Dates: start: 20121027
  4. COUMADINE [Concomitant]
     Route: 048
     Dates: start: 20121027
  5. SERESTA [Concomitant]
     Dosage: 10MG AT NIGHT
     Route: 048

REACTIONS (4)
  - Delirium [Recovered/Resolved]
  - Hallucination [Recovered/Resolved]
  - Disorientation [Unknown]
  - Persecutory delusion [Recovered/Resolved]
